FAERS Safety Report 12547978 (Version 1)
Quarter: 2016Q3

REPORT INFORMATION
  Report Type: Spontaneous
  Country: US (occurrence: None)
  Receive Date: 20160711
  Receipt Date: 20160711
  Transmission Date: 20161109
  Serious: Yes (Other)
  Sender: FDA-Public Use
  Company Number: None

PATIENT
  Age: 66 Year
  Sex: Female
  Weight: 65.32 kg

DRUGS (11)
  1. EVOXAC [Concomitant]
     Active Substance: CEVIMELINE HYDROCHLORIDE
  2. DIAZEPAM. [Concomitant]
     Active Substance: DIAZEPAM
  3. IBUPROFEN. [Concomitant]
     Active Substance: IBUPROFEN
  4. TRAMADOL. [Concomitant]
     Active Substance: TRAMADOL
  5. ARIMIDEX [Concomitant]
     Active Substance: ANASTROZOLE
  6. ATORVASTATIN [Concomitant]
     Active Substance: ATORVASTATIN
  7. LANZOPRAZLOLE [Concomitant]
  8. VITAMIN D3 [Concomitant]
     Active Substance: CHOLECALCIFEROL
  9. PROLIA [Suspect]
     Active Substance: DENOSUMAB
     Indication: OSTEOARTHRITIS
     Dosage: EVERY SIX MONTHS INTO THE MUSCLE
     Route: 030
     Dates: start: 20160622, end: 20160622
  10. PLAQUANEL [Concomitant]
  11. CALCIUM CITRATE [Concomitant]
     Active Substance: CALCIUM CITRATE

REACTIONS (1)
  - Injection site pain [None]

NARRATIVE: CASE EVENT DATE: 20160622
